FAERS Safety Report 16170178 (Version 1)
Quarter: 2019Q2

REPORT INFORMATION
  Report Type: Report from Study
  Country: US (occurrence: US)
  Receive Date: 20190408
  Receipt Date: 20190408
  Transmission Date: 20190711
  Serious: No
  Sender: FDA-Public Use
  Company Number: PHEH2019US014897

PATIENT
  Sex: Male

DRUGS (1)
  1. ENTRESTO [Suspect]
     Active Substance: SACUBITRIL\VALSARTAN
     Indication: CARDIAC FAILURE
     Route: 048

REACTIONS (6)
  - Memory impairment [Unknown]
  - Depression [Unknown]
  - Product prescribing error [Unknown]
  - Hypoacusis [Unknown]
  - Gastrointestinal disorder [Unknown]
  - Confusional state [Unknown]
